FAERS Safety Report 4549919-1 (Version None)
Quarter: 2004Q4

REPORT INFORMATION
  Report Type: 
  Country: None (occurrence: None)
  Receive Date: 20041230
  Receipt Date: 20040510
  Transmission Date: 20050328
  Serious: Yes (Death)
  Sender: FDA-Public Use
  Company Number: 04-05-0670

PATIENT
  Age: 50 Year
  Sex: Female

DRUGS (1)
  1. CLOZAPINE [Suspect]
     Dosage: 200-275 MG QD ORAL
     Route: 048
     Dates: start: 20030501, end: 20040401

REACTIONS (1)
  - UNEVALUABLE EVENT [None]
